FAERS Safety Report 9636612 (Version 1)
Quarter: 2013Q4

REPORT INFORMATION
  Report Type: Spontaneous
  Country: GB (occurrence: GB)
  Receive Date: 20131021
  Receipt Date: 20131021
  Transmission Date: 20140711
  Serious: Yes (Life-Threatening, Hospitalization)
  Sender: FDA-Public Use
  Company Number: GB-ASTRAZENECA-2013SE77032

PATIENT
  Age: 75 Year
  Sex: Female
  Weight: 60 kg

DRUGS (15)
  1. TICAGRELOR [Suspect]
     Indication: ACUTE CORONARY SYNDROME
     Route: 048
     Dates: start: 20130607, end: 20130621
  2. AMLODIPINE [Concomitant]
  3. AMOXYCILLIN [Concomitant]
  4. ASPIRIN COATED [Concomitant]
  5. ENOXAPARIN [Concomitant]
  6. FUROSEMIDE [Concomitant]
  7. IMMUNOGLOBULIN [Concomitant]
  8. LANSOPRAZOLE [Concomitant]
  9. OMEPRAZOLE [Concomitant]
  10. PREDNISOLONE [Concomitant]
  11. PROPANTHELINE BROMIDE [Concomitant]
  12. PYRIDOSTIGMINE [Concomitant]
  13. SANDO-K [Concomitant]
  14. SIMVASTATIN [Concomitant]
  15. TAZOCIN [Concomitant]

REACTIONS (3)
  - Hypotension [Unknown]
  - Rectal ulcer [Unknown]
  - Rectal haemorrhage [Recovered/Resolved]
